FAERS Safety Report 4357230-7 (Version None)
Quarter: 2004Q2

REPORT INFORMATION
  Report Type: 
  Country: None (occurrence: None)
  Receive Date: 20040507
  Receipt Date: 20040420
  Transmission Date: 20050107
  Serious: Yes (Other)
  Sender: FDA-Public Use
  Company Number: US_0404102420

PATIENT
  Age: 55 Year
  Sex: Female
  Weight: 85 kg

DRUGS (7)
  1. HUMATROPE [Suspect]
     Indication: GROWTH HORMONE DEFICIENCY
     Dosage: 0.8 MG/1 DAY
     Dates: start: 19990121, end: 20040211
  2. FEMHFT [Concomitant]
  3. DDAVP [Concomitant]
  4. CORTISONE [Concomitant]
  5. SYNTHROID [Concomitant]
  6. ASPIRIN [Concomitant]
  7. XENICAL [Concomitant]

REACTIONS (1)
  - LYMPHOMA [None]
